FAERS Safety Report 9116166 (Version 2)
Quarter: 2013Q2

REPORT INFORMATION
  Report Type: Spontaneous
  Country: BR (occurrence: BR)
  Receive Date: 20130225
  Receipt Date: 20130418
  Transmission Date: 20140414
  Serious: Yes (Hospitalization)
  Sender: FDA-Public Use
  Company Number: BR-MERCK-1302BRA010366

PATIENT
  Age: 51 Year
  Sex: Male
  Weight: 93 kg

DRUGS (9)
  1. PEG-INTRON [Suspect]
     Indication: HEPATITIS C
     Dosage: 100 MICROGRAM, QW
     Route: 058
     Dates: start: 20120720, end: 201302
  2. RIBAVIRIN (NON-MERCK) [Concomitant]
     Indication: HEPATITIS C
     Dosage: 500 MG, QAM
     Route: 048
     Dates: start: 20120720, end: 201302
  3. RIBAVIRIN (NON-MERCK) [Concomitant]
     Dosage: 750 MG, QPM
     Route: 048
     Dates: start: 20120720, end: 201302
  4. LOSARTAN POTASSIUM (NON-MERCK) [Concomitant]
     Indication: HYPERTENSION
     Dosage: 50 MG, QD
     Route: 065
     Dates: start: 2012
  5. GLYBURIDE [Concomitant]
     Indication: TYPE 1 DIABETES MELLITUS
     Dosage: 5 MG, QAM
     Route: 065
     Dates: start: 2011
  6. METFORMIN [Concomitant]
     Indication: TYPE 1 DIABETES MELLITUS
     Dosage: 500 MG, QD
     Route: 065
     Dates: start: 2011
  7. PROPRANOLOL HYDROCHLORIDE [Concomitant]
     Dosage: 40 MG, QD
     Route: 065
     Dates: start: 2012
  8. DIPYRONE [Concomitant]
     Indication: PAIN
     Dosage: UNK, PRN
     Route: 065
  9. BUSCOPAN [Concomitant]
     Indication: PAIN
     Dosage: UNK, PRN
     Route: 065

REACTIONS (9)
  - Orchitis noninfective [Not Recovered/Not Resolved]
  - Ageusia [Not Recovered/Not Resolved]
  - Application site erythema [Not Recovered/Not Resolved]
  - Cystitis [Not Recovered/Not Resolved]
  - Vomiting [Unknown]
  - Malaise [Unknown]
  - Dry skin [Not Recovered/Not Resolved]
  - Decreased appetite [Not Recovered/Not Resolved]
  - Drug ineffective [Unknown]
